FAERS Safety Report 12760479 (Version 13)
Quarter: 2020Q2

REPORT INFORMATION
  Report Type: Report from Study
  Country: US (occurrence: US)
  Receive Date: 20160919
  Receipt Date: 20200406
  Transmission Date: 20200713
  Serious: Yes (Hospitalization)
  Sender: FDA-Public Use
  Company Number: US-ACTELION-A-US2016-142331

PATIENT
  Age: 69 Year
  Sex: Male
  Weight: 61.22 kg

DRUGS (12)
  1. CLOPIDOGREL [Suspect]
     Active Substance: CLOPIDOGREL BISULFATE
     Indication: PRODUCT USED FOR UNKNOWN INDICATION
     Dosage: 75 MG, UNK
     Route: 048
  2. BUDESONIDE. [Concomitant]
     Active Substance: BUDESONIDE
  3. METOPROLOL. [Concomitant]
     Active Substance: METOPROLOL
  4. TIOTROPIUM [Concomitant]
     Active Substance: TIOTROPIUM
  5. FUROSEMIDE. [Concomitant]
     Active Substance: FUROSEMIDE
     Dosage: 40 MG, QD
  6. WARFARIN [Suspect]
     Active Substance: WARFARIN
     Indication: PRODUCT USED FOR UNKNOWN INDICATION
     Dosage: 2.5 MG, QPM
     Route: 048
  7. LISINOPRIL. [Concomitant]
     Active Substance: LISINOPRIL
  8. ASPIRIN. [Suspect]
     Active Substance: ASPIRIN
     Indication: PRODUCT USED FOR UNKNOWN INDICATION
     Dosage: 81 MG, UNK
     Route: 048
  9. ALBUTEROL. [Concomitant]
     Active Substance: ALBUTEROL
  10. ATORVASTATIN [Concomitant]
     Active Substance: ATORVASTATIN
     Dosage: 40 MG, QPM
  11. OPSUMIT [Suspect]
     Active Substance: MACITENTAN
     Indication: PULMONARY HYPERTENSION
     Dosage: 10 MG, QD
     Route: 048
     Dates: start: 20150410
  12. PANTOPRAZOLE [Concomitant]
     Active Substance: PANTOPRAZOLE
     Dosage: 40 MG, BID

REACTIONS (18)
  - Anaemia [Recovered/Resolved]
  - Abnormal faeces [Unknown]
  - Incision site haemorrhage [Recovered/Resolved]
  - Atrial septal defect repair [Unknown]
  - Periodontal disease [Recovered/Resolved]
  - Hospitalisation [Unknown]
  - Gastrointestinal haemorrhage [Unknown]
  - Accidental overdose [Recovered/Resolved]
  - Fall [Unknown]
  - Dizziness postural [Unknown]
  - Pneumonia [Unknown]
  - Hypertension [Unknown]
  - Toothache [Recovered/Resolved]
  - Abdominal pain [Recovered/Resolved]
  - Epistaxis [Recovered/Resolved]
  - Haemoglobin decreased [Recovered/Resolved]
  - Packed red blood cell transfusion [Unknown]
  - Skin laceration [Unknown]

NARRATIVE: CASE EVENT DATE: 20150529
